FAERS Safety Report 17167844 (Version 1)
Quarter: 2019Q4

REPORT INFORMATION
  Report Type: Spontaneous
  Country: GB (occurrence: GB)
  Receive Date: 20191218
  Receipt Date: 20191218
  Transmission Date: 20200122
  Serious: Yes (Death)
  Sender: FDA-Public Use
  Company Number: GB-TEVA-2019-GB-1152037

PATIENT
  Age: 77 Year
  Sex: Male

DRUGS (5)
  1. DIABETES MEDICATION [Concomitant]
     Active Substance: UNSPECIFIED INGREDIENT
  2. BENZYLPENICILLIN [Suspect]
     Active Substance: PENICILLIN G
     Indication: PNEUMONIA
     Route: 065
  3. APIXABAN [Concomitant]
     Active Substance: APIXABAN
     Dosage: 2.5 MG TWICE DAILY (BD) AND SWITCHED BACK TO 5 MG BD
  4. DOXYCYCLINE. [Suspect]
     Active Substance: DOXYCYCLINE
     Indication: PNEUMONIA
     Route: 065
  5. MEROPENEM. [Suspect]
     Active Substance: MEROPENEM
     Route: 065

REACTIONS (10)
  - Malaise [Fatal]
  - Pallor [Fatal]
  - Hypophagia [Fatal]
  - Liver function test abnormal [Fatal]
  - Therapy non-responder [Fatal]
  - Metabolic acidosis [Fatal]
  - Dyspnoea [Fatal]
  - Nasopharyngitis [Fatal]
  - Syncope [Fatal]
  - Sepsis [Fatal]

NARRATIVE: CASE EVENT DATE: 20190428
